FAERS Safety Report 5972931-2 (Version None)
Quarter: 2008Q4

REPORT INFORMATION
  Report Type: 
  Country: None (occurrence: None)
  Receive Date: 20081201
  Receipt Date: 20081121
  Transmission Date: 20090506
  Serious: Yes (Other)
  Sender: FDA-Public Use
  Company Number: PHHY2008BR29316

PATIENT
  Age: 28 Year
  Sex: Female

DRUGS (2)
  1. SANDOSTATIN LAR [Suspect]
     Indication: PITUITARY TUMOUR
     Dosage: 1 DOSE EVERY 28 DAYS
     Route: 030
     Dates: start: 20070101
  2. SANDOSTATIN LAR [Suspect]
     Dosage: 30 MG

REACTIONS (2)
  - BLOOD GROWTH HORMONE ABNORMAL [None]
  - PITUITARY TUMOUR REMOVAL [None]
